FAERS Safety Report 4827452-7 (Version None)
Quarter: 2005Q4

REPORT INFORMATION
  Report Type: 
  Country: None (occurrence: None)
  Receive Date: 20051114
  Receipt Date: 20051102
  Transmission Date: 20060501
  Serious: Yes (Other)
  Sender: FDA-Public Use
  Company Number: ES-ROCHE-424389

PATIENT
  Age: 39 Year
  Sex: Female

DRUGS (2)
  1. RIBAVIRIN [Suspect]
     Route: 065
  2. INTERFERON ALFA [Suspect]
     Route: 065

REACTIONS (1)
  - SARCOIDOSIS [None]
